FAERS Safety Report 23366147 (Version 3)
Quarter: 2024Q1

REPORT INFORMATION
  Report Type: Spontaneous
  Country: DE (occurrence: DE)
  Receive Date: 20240104
  Receipt Date: 20240202
  Transmission Date: 20240409
  Serious: No
  Sender: FDA-Public Use
  Company Number: DE-PFIZER INC-PV202300203225

PATIENT
  Age: 41 Year
  Sex: Female

DRUGS (1)
  1. MEDROXYPROGESTERONE [Suspect]
     Active Substance: MEDROXYPROGESTERONE
     Indication: Contraception
     Dosage: 0.65 ML

REACTIONS (2)
  - Drug dose omission by device [Unknown]
  - Device occlusion [Unknown]

NARRATIVE: CASE EVENT DATE: 20231201
